FAERS Safety Report 17841274 (Version 1)
Quarter: 2020Q2

REPORT INFORMATION
  Report Type: Report from Study
  Country: ES (occurrence: ES)
  Receive Date: 20200529
  Receipt Date: 20200529
  Transmission Date: 20200714
  Serious: Yes (Hospitalization)
  Sender: FDA-Public Use
  Company Number: ES-TEVA-2020-ES-1240533

PATIENT
  Age: 74 Year
  Sex: Female

DRUGS (6)
  1. WARFARINA SODICA (3221SO) [Interacting]
     Active Substance: WARFARIN SODIUM
     Indication: THROMBOSIS PROPHYLAXIS
     Route: 048
     Dates: start: 20161007, end: 20191109
  2. BECLOMETASONA + FORMOTEROL [Concomitant]
     Indication: ASTHMA
     Dosage: 24 MICROGRAM
     Route: 055
     Dates: start: 20171107, end: 20191109
  3. SERTRALINA (2537A) [Interacting]
     Active Substance: SERTRALINE HYDROCHLORIDE
     Indication: DEPRESSION
     Dosage: 50 MG
     Route: 048
     Dates: start: 20180814, end: 20191109
  4. NAPROXENO (2002A) [Interacting]
     Active Substance: NAPROXEN
     Indication: PAIN
     Dosage: 1.2 GM
     Route: 048
     Dates: start: 20191105, end: 20191109
  5. PARACETAMOL (12A) [Concomitant]
     Active Substance: ACETAMINOPHEN
     Indication: PAIN
     Dosage: 1 GM
     Route: 048
     Dates: end: 20191109
  6. SIMVASTATINA (1023A) [Suspect]
     Active Substance: SIMVASTATIN
     Indication: HYPERCHOLESTEROLAEMIA
     Dosage: 20 MG
     Route: 048
     Dates: start: 201910, end: 20191109

REACTIONS (3)
  - Upper gastrointestinal haemorrhage [Recovered/Resolved]
  - Lower gastrointestinal haemorrhage [Recovered/Resolved]
  - Drug interaction [Unknown]

NARRATIVE: CASE EVENT DATE: 20191109
